FAERS Safety Report 20323771 (Version 1)
Quarter: 2022Q1

REPORT INFORMATION
  Report Type: Spontaneous
  Country: US (occurrence: US)
  Receive Date: 20220111
  Receipt Date: 20220111
  Transmission Date: 20220423
  Serious: Yes (Other)
  Sender: FDA-Public Use
  Company Number: US-ELI_LILLY_AND_COMPANY-US202201002546

PATIENT
  Sex: Female

DRUGS (3)
  1. SOMATROPIN [Suspect]
     Active Substance: SOMATROPIN
     Indication: Product used for unknown indication
     Dosage: UNK UNK, UNKNOWN
     Route: 065
     Dates: start: 2006
  2. SOMATROPIN [Suspect]
     Active Substance: SOMATROPIN
     Dosage: UNK UNK, UNKNOWN
     Route: 065
  3. SOMATROPIN [Suspect]
     Active Substance: SOMATROPIN
     Dosage: UNK UNK, UNKNOWN
     Route: 065
     Dates: start: 20211228

REACTIONS (8)
  - Aphonia [Unknown]
  - Skin atrophy [Unknown]
  - Diarrhoea [Unknown]
  - Fatigue [Unknown]
  - Asthenia [Unknown]
  - Alopecia [Unknown]
  - Vomiting [Unknown]
  - Nausea [Unknown]
